FAERS Safety Report 8842072 (Version 7)
Quarter: 2015Q3

REPORT INFORMATION
  Report Type: Spontaneous
  Country: US (occurrence: US)
  Receive Date: 20121016
  Receipt Date: 20150707
  Transmission Date: 20151125
  Serious: Yes (Hospitalization, Disabling, Other)
  Sender: FDA-Public Use
  Company Number: US-MERCK-1210USA004483

PATIENT
  Sex: Female
  Weight: 60.77 kg

DRUGS (8)
  1. FOSAMAX [Suspect]
     Active Substance: ALENDRONATE SODIUM
     Indication: OSTEOPOROSIS
     Dosage: UNK, QD
     Route: 048
     Dates: start: 1996
  2. FOSAMAX [Suspect]
     Active Substance: ALENDRONATE SODIUM
     Dosage: 70 MG, QW
     Route: 048
     Dates: end: 20040816
  3. ALENDRONATE SODIUM. [Suspect]
     Active Substance: ALENDRONATE SODIUM
     Indication: OSTEOPOROSIS
     Dosage: 70 MG, UNK
     Route: 048
     Dates: start: 20080627, end: 20101127
  4. CITRACAL + D [Concomitant]
     Active Substance: CALCIUM CITRATE\VITAMIN D
     Dosage: UNK, TID
     Route: 048
     Dates: start: 1994
  5. ESTRADERM [Concomitant]
     Active Substance: ESTRADIOL
     Dosage: UNK
     Dates: start: 1994
  6. FOSAMAX [Suspect]
     Active Substance: ALENDRONATE SODIUM
     Dosage: 70 MG, QW
     Route: 048
     Dates: start: 20080202
  7. SYNTHROID [Concomitant]
     Active Substance: LEVOTHYROXINE SODIUM
     Indication: HYPOTHYROIDISM
     Dosage: UNK
     Dates: start: 1950
  8. PROTONIX [Concomitant]
     Active Substance: PANTOPRAZOLE SODIUM
     Dosage: UNK
     Dates: start: 1994

REACTIONS (26)
  - Cerebrovascular accident [Unknown]
  - Somnolence [Unknown]
  - Pain in extremity [Unknown]
  - Anaemia postoperative [Recovering/Resolving]
  - Anaemia [Unknown]
  - Spondylolisthesis [Unknown]
  - Uterine disorder [Unknown]
  - Lumbar spinal stenosis [Unknown]
  - Low turnover osteopathy [Not Recovered/Not Resolved]
  - Thrombocytopenia [Unknown]
  - Appendix disorder [Unknown]
  - Gastrooesophageal reflux disease [Unknown]
  - Lumbar radiculopathy [Unknown]
  - Spinal disorder [Unknown]
  - Hypercholesterolaemia [Unknown]
  - Paraesthesia [Unknown]
  - Haematoma [Recovered/Resolved]
  - Hypertension [Unknown]
  - Spinal osteoarthritis [Unknown]
  - Muscular weakness [Unknown]
  - Arthralgia [Unknown]
  - Femur fracture [Recovered/Resolved]
  - Hypokalaemia [Unknown]
  - Gallbladder disorder [Unknown]
  - Back pain [Not Recovered/Not Resolved]
  - Drug ineffective [Unknown]

NARRATIVE: CASE EVENT DATE: 2001
